FAERS Safety Report 22925168 (Version 4)
Quarter: 2023Q4

REPORT INFORMATION
  Report Type: Report from Study
  Country: IL (occurrence: IL)
  Receive Date: 20230908
  Receipt Date: 20231122
  Transmission Date: 20240110
  Serious: Yes (Death, Hospitalization)
  Sender: FDA-Public Use
  Company Number: IL-JNJFOC-20230838982

PATIENT
  Age: 71 Year
  Sex: Male
  Weight: 66.8 kg

DRUGS (36)
  1. TECLISTAMAB [Suspect]
     Active Substance: TECLISTAMAB
     Indication: Plasma cell myeloma
     Dosage: END DATE ALSO REPORTED AS 03-AUG-2023.
     Route: 058
     Dates: start: 20230801, end: 20230809
  2. TECLISTAMAB [Suspect]
     Active Substance: TECLISTAMAB
     Route: 058
     Dates: start: 20230816, end: 20230816
  3. TALQUETAMAB [Suspect]
     Active Substance: TALQUETAMAB
     Indication: Plasma cell myeloma
     Dosage: DOSAGE 300?DOSAGE ALSO REPORTED AS 300 MG / KG?DOSAGE ALSO REPORTED AS 800 DOSAGE FORMS.
     Route: 058
     Dates: start: 20230801, end: 20230809
  4. TALQUETAMAB [Suspect]
     Active Substance: TALQUETAMAB
     Route: 058
     Dates: start: 20230801, end: 20230816
  5. TAMSULOSIN HYDROCHLORIDE [Concomitant]
     Active Substance: TAMSULOSIN HYDROCHLORIDE
     Indication: Benign prostatic hyperplasia
     Route: 048
     Dates: start: 20200101, end: 20230825
  6. ACYCLOVIR [Concomitant]
     Active Substance: ACYCLOVIR
     Indication: Antiviral prophylaxis
     Route: 048
     Dates: start: 20211101, end: 20230901
  7. FERROCAL [CALCIUM FERROUS CITRATE] [Concomitant]
     Indication: Mineral supplementation
     Route: 048
     Dates: start: 20220101, end: 20230830
  8. OXYGEN [Concomitant]
     Active Substance: OXYGEN
     Indication: Pleural effusion
     Route: 045
     Dates: start: 20230806, end: 20230807
  9. OXYGEN [Concomitant]
     Active Substance: OXYGEN
     Indication: Prophylaxis
     Dosage: 28 %
     Route: 045
     Dates: start: 20230802, end: 20230802
  10. DEXAMETHASONE [Concomitant]
     Active Substance: DEXAMETHASONE
     Indication: Cytokine release syndrome
     Route: 042
     Dates: start: 20230807
  11. DEXAMETHASONE [Concomitant]
     Active Substance: DEXAMETHASONE
     Route: 042
     Dates: start: 20230828, end: 20230831
  12. NALOXONE HYDROCHLORIDE\OXYCODONE HYDROCHLORIDE [Concomitant]
     Active Substance: NALOXONE HYDROCHLORIDE\OXYCODONE HYDROCHLORIDE
     Indication: Chest pain
     Route: 048
     Dates: start: 20230802, end: 20230806
  13. NALOXONE HYDROCHLORIDE\OXYCODONE HYDROCHLORIDE [Concomitant]
     Active Substance: NALOXONE HYDROCHLORIDE\OXYCODONE HYDROCHLORIDE
     Route: 048
     Dates: start: 20230801, end: 20230802
  14. FUSIDIC ACID [Concomitant]
     Active Substance: FUSIDIC ACID
     Indication: Diuretic therapy
     Route: 048
     Dates: start: 20230803, end: 20230822
  15. FUSIDIC ACID [Concomitant]
     Active Substance: FUSIDIC ACID
     Route: 042
     Dates: start: 20230809, end: 20230820
  16. FUSIDIC ACID [Concomitant]
     Active Substance: FUSIDIC ACID
     Route: 048
     Dates: start: 20230821, end: 20230822
  17. FUSIDIC ACID [Concomitant]
     Active Substance: FUSIDIC ACID
     Dates: start: 20230803, end: 20230803
  18. FUSIDIC ACID [Concomitant]
     Active Substance: FUSIDIC ACID
     Route: 042
     Dates: start: 20230804, end: 20230804
  19. DEXAMETHASONE [Concomitant]
     Active Substance: DEXAMETHASONE
     Indication: Cytokine release syndrome
     Dates: start: 20230807, end: 20230809
  20. DEXAMETHASONE [Concomitant]
     Active Substance: DEXAMETHASONE
     Dates: start: 20230806, end: 20230806
  21. PIPERACILLIN SODIUM\TAZOBACTAM SODIUM [Concomitant]
     Active Substance: PIPERACILLIN SODIUM\TAZOBACTAM SODIUM
     Indication: Infection prophylaxis
     Route: 042
     Dates: start: 20230807, end: 20230816
  22. CLONAZEPAM [Concomitant]
     Active Substance: CLONAZEPAM
     Indication: Anxiety
     Route: 048
     Dates: start: 20230818, end: 20230818
  23. BROTIZOLAM [Concomitant]
     Active Substance: BROTIZOLAM
     Indication: Anxiety
     Route: 048
     Dates: start: 20230821, end: 20230821
  24. CALCIUM CARBONATE [Concomitant]
     Active Substance: CALCIUM CARBONATE
     Indication: Osteoporosis prophylaxis
     Route: 048
     Dates: start: 20210101, end: 20230901
  25. OMEPRAZOLE [Concomitant]
     Active Substance: OMEPRAZOLE
     Indication: Prophylaxis
     Route: 048
     Dates: start: 20220101, end: 20230901
  26. ERGOCALCIFEROL [Concomitant]
     Active Substance: ERGOCALCIFEROL
     Indication: Osteoporosis prophylaxis
     Route: 048
     Dates: start: 20220101
  27. LEVOFLOXACIN [Concomitant]
     Active Substance: LEVOFLOXACIN
     Indication: Infection prophylaxis
     Route: 048
     Dates: start: 20230727, end: 20230907
  28. NIFEDIPINE [Concomitant]
     Active Substance: NIFEDIPINE
     Indication: Haemorrhoids
     Dosage: 1
     Route: 054
     Dates: start: 20230825, end: 20230831
  29. POLYETHYLENE GLYCOLS [Concomitant]
     Active Substance: POLYETHYLENE GLYCOLS
     Indication: Haemorrhoids
     Route: 048
     Dates: start: 20230829, end: 20230831
  30. HALOPERIDOL [Concomitant]
     Active Substance: HALOPERIDOL
     Indication: Delirium
     Route: 030
     Dates: start: 20230904, end: 20230904
  31. FLUCONAZOLE [Concomitant]
     Active Substance: FLUCONAZOLE
     Indication: Large intestine perforation
     Route: 042
     Dates: start: 20230904, end: 20230905
  32. LEVOFLOXACIN [Concomitant]
     Active Substance: LEVOFLOXACIN
     Indication: Infection prophylaxis
     Route: 048
     Dates: start: 20230801, end: 20230807
  33. AEROVENT [BUDESONIDE] [Concomitant]
     Indication: Pleural effusion
     Route: 055
     Dates: start: 20230803, end: 20230822
  34. DIPYRONE [Concomitant]
     Active Substance: DIPYRONE
     Indication: Cytokine release syndrome
     Route: 048
     Dates: start: 20230806, end: 20230806
  35. LORAZEPAM [Concomitant]
     Active Substance: LORAZEPAM
     Indication: Anxiety
     Route: 048
     Dates: start: 20230812, end: 20230812
  36. LIDOCAINE;NIFEDIPINE [Concomitant]
     Indication: Haemorrhoids
     Dates: start: 20230825, end: 20230831

REACTIONS (4)
  - Sepsis [Fatal]
  - Immune effector cell-associated neurotoxicity syndrome [Not Recovered/Not Resolved]
  - Large intestine perforation [Fatal]
  - Pleural effusion [Not Recovered/Not Resolved]

NARRATIVE: CASE EVENT DATE: 20230805
